FAERS Safety Report 15011647 (Version 1)
Quarter: 2018Q2

REPORT INFORMATION
  Report Type: Spontaneous
  Country: JP (occurrence: JP)
  Receive Date: 20180614
  Receipt Date: 20180614
  Transmission Date: 20180711
  Serious: Yes (Hospitalization, Other)
  Sender: FDA-Public Use
  Company Number: JP-GLAXOSMITHKLINE-JP2018JPN102063

PATIENT
  Age: 54 Year
  Sex: Female

DRUGS (2)
  1. ITRIZOLE (ITRACONAZOLE) [Concomitant]
     Indication: ASPERGILLUS INFECTION
     Dosage: UNK
     Dates: start: 20171128
  2. RELVAR ELLIPTA [Suspect]
     Active Substance: FLUTICASONE FUROATE\VILANTEROL TRIFENATATE
     Indication: ASPERGILLUS INFECTION
     Dosage: UNK
     Route: 055
     Dates: start: 2017

REACTIONS (8)
  - Cough [Unknown]
  - Stevens-Johnson syndrome [Recovering/Resolving]
  - Pyrexia [Unknown]
  - Aspergillus infection [Unknown]
  - Dyspnoea [Unknown]
  - Contraindicated product administered [Unknown]
  - Condition aggravated [Unknown]
  - Product use in unapproved indication [Unknown]
